FAERS Safety Report 8287663-8 (Version None)
Quarter: 2012Q2

REPORT INFORMATION
  Report Type: 
  Country: None (occurrence: None)
  Receive Date: 20120416
  Receipt Date: 20120411
  Transmission Date: 20120825
  Serious: Yes (Other)
  Sender: FDA-Public Use
  Company Number: PHEH2010US03402

PATIENT
  Sex: Female

DRUGS (26)
  1. ZOMETA [Suspect]
     Indication: MULTIPLE MYELOMA
     Dosage: 4 MG, MONTHLY
     Route: 042
     Dates: start: 20061129
  2. METHOTREXATE [Concomitant]
  3. PERIDEX [Concomitant]
  4. FUROSEMIDE [Concomitant]
     Dosage: 40 MG, UNK
  5. COUMADIN [Concomitant]
  6. LISINOPRIL [Concomitant]
  7. PRIMIDONE [Concomitant]
  8. ENABLEX [Concomitant]
  9. SEROQUEL [Concomitant]
  10. COUMADIN [Concomitant]
  11. SULFASALAZINE [Concomitant]
     Dosage: 1 G, BID
  12. GLUCOSAMINE [Concomitant]
  13. HYDROCHLOROTHIAZIDE [Concomitant]
  14. CHONDROITIN SULFATE [Concomitant]
  15. SYNTHROID [Concomitant]
     Dosage: 88 MG, BID
  16. VITAMIN D [Concomitant]
  17. FOSAMAX [Suspect]
  18. CELEBREX [Concomitant]
  19. THALIDOMIDE [Concomitant]
  20. PERCOCET [Concomitant]
  21. VITAMIN K TAB [Concomitant]
     Dosage: 100 MG, UNK
  22. AMIODARONE HCL [Concomitant]
  23. HYDROXYCHLOROQUINE SULFATE [Concomitant]
  24. VANCOMYCIN [Concomitant]
  25. PREDNISONE TAB [Concomitant]
  26. CALCIUM CARBONATE [Concomitant]

REACTIONS (56)
  - OSTEOPOROSIS [None]
  - ANXIETY [None]
  - H1N1 INFLUENZA [None]
  - SCOLIOSIS [None]
  - KYPHOSIS [None]
  - EFFUSION [None]
  - HYPOTHYROIDISM [None]
  - SINUS ARRHYTHMIA [None]
  - HAEMATURIA [None]
  - LEFT ATRIAL DILATATION [None]
  - DYSLIPIDAEMIA [None]
  - ATELECTASIS [None]
  - PULMONARY EMBOLISM [None]
  - SINUS BRADYCARDIA [None]
  - OSTEONECROSIS OF JAW [None]
  - ISCHAEMIC CARDIOMYOPATHY [None]
  - THYROID DISORDER [None]
  - COLONIC POLYP [None]
  - SINUS ARREST [None]
  - HIP FRACTURE [None]
  - ARTHRALGIA [None]
  - ANHEDONIA [None]
  - RAYNAUD'S PHENOMENON [None]
  - LEUKOPENIA [None]
  - DIARRHOEA [None]
  - EXPOSED BONE IN JAW [None]
  - THROMBOSIS [None]
  - INTERVERTEBRAL DISC DEGENERATION [None]
  - STRESS URINARY INCONTINENCE [None]
  - GASTROOESOPHAGEAL REFLUX DISEASE [None]
  - CARDIAC FAILURE CONGESTIVE [None]
  - INJURY [None]
  - TOOTH LOSS [None]
  - MONOCLONAL GAMMOPATHY [None]
  - NEUROPATHY PERIPHERAL [None]
  - AORTIC ARTERIOSCLEROSIS [None]
  - PULMONARY FIBROSIS [None]
  - RENAL FAILURE [None]
  - URINARY RETENTION [None]
  - MICTURITION URGENCY [None]
  - SUPRAVENTRICULAR TACHYCARDIA [None]
  - BACK PAIN [None]
  - PAIN [None]
  - URINE ANALYSIS ABNORMAL [None]
  - ANAEMIA [None]
  - PLANTAR FASCIITIS [None]
  - MACROCYTOSIS [None]
  - DYSPNOEA [None]
  - MITRAL VALVE INCOMPETENCE [None]
  - OSTEOARTHRITIS [None]
  - DYSURIA [None]
  - ATRIAL FLUTTER [None]
  - DIVERTICULUM INTESTINAL [None]
  - HAEMORRHOIDS [None]
  - OSTEOPENIA [None]
  - CONSTIPATION [None]
